FAERS Safety Report 8162678-9 (Version None)
Quarter: 2012Q1

REPORT INFORMATION
  Report Type: 
  Country: None (occurrence: None)
  Receive Date: 20120224
  Receipt Date: 20120216
  Transmission Date: 20120608
  Serious: Yes (Hospitalization, Other)
  Sender: FDA-Public Use
  Company Number: US-JNJFOC-20120209461

PATIENT
  Sex: Female
  Weight: 45.81 kg

DRUGS (13)
  1. FENTANYL-100 [Suspect]
     Indication: NEUROPATHY PERIPHERAL
     Route: 062
     Dates: start: 20111201, end: 20111201
  2. ASPIRIN [Concomitant]
     Indication: PRODUCT USED FOR UNKNOWN INDICATION
     Route: 048
     Dates: start: 20100101
  3. PRAVASTATIN [Concomitant]
     Indication: BLOOD CHOLESTEROL INCREASED
     Route: 048
     Dates: start: 20080101
  4. COREG [Concomitant]
     Indication: CARDIAC DISORDER
     Route: 048
     Dates: start: 20101101
  5. IMDUR [Concomitant]
     Indication: CARDIAC DISORDER
     Dosage: 2-3 TABLETS/DAILY AS NEEDED
     Route: 048
     Dates: start: 20100101
  6. MIRAPEX [Concomitant]
     Indication: RESTLESS LEGS SYNDROME
     Dosage: 2-3 TABLETS/DAILY AS NEEDED
     Route: 048
     Dates: start: 20070101
  7. HUMALOG [Concomitant]
     Indication: DIABETES MELLITUS
     Dosage: 2-3 TABLETS/DAILY AS NEEDED
     Route: 058
     Dates: start: 20000101, end: 20120101
  8. GABAPENTIN [Concomitant]
     Indication: NEUROPATHY PERIPHERAL
     Route: 048
     Dates: start: 20100101
  9. FENTANYL-100 [Suspect]
     Route: 062
     Dates: start: 20111201, end: 20120101
  10. PLAVIX [Concomitant]
     Indication: CARDIOVASCULAR DISORDER
     Route: 048
     Dates: start: 19970101
  11. PERCOCET [Concomitant]
     Indication: PAIN
     Dosage: 2-3 TABLETS/DAILY AS NEEDED
     Route: 048
  12. FENTANYL-100 [Suspect]
     Dosage: NDC: 0781-7241-55
     Route: 062
     Dates: start: 20120101
  13. NOVOLOG [Concomitant]
     Indication: DIABETES MELLITUS
     Route: 058
     Dates: start: 20120101

REACTIONS (8)
  - HAEMOGLOBIN DECREASED [None]
  - GASTROINTESTINAL HAEMORRHAGE [None]
  - SOMNOLENCE [None]
  - PRODUCT QUALITY ISSUE [None]
  - SOMNAMBULISM [None]
  - DRUG INEFFECTIVE [None]
  - INITIAL INSOMNIA [None]
  - WRONG TECHNIQUE IN DRUG USAGE PROCESS [None]
